FAERS Safety Report 14056161 (Version 5)
Quarter: 2018Q1

REPORT INFORMATION
  Report Type: Report from Study
  Country: DE (occurrence: DE)
  Receive Date: 20171006
  Receipt Date: 20180320
  Transmission Date: 20180508
  Serious: Yes (Hospitalization, Other)
  Sender: FDA-Public Use
  Company Number: PHHY2017DE144378

PATIENT
  Age: 55 Year
  Sex: Male
  Weight: 97 kg

DRUGS (17)
  1. VALPROATE [Concomitant]
     Active Substance: VALPROIC ACID
     Indication: BIPOLAR DISORDER
     Dosage: 500 MG, QD AND 1000 MG QD
     Route: 048
  2. MELPERONE [Concomitant]
     Active Substance: MELPERONE
     Indication: BIPOLAR DISORDER
     Dosage: 1 DF, QD
     Route: 048
  3. ENTRESTO [Suspect]
     Active Substance: SACUBITRIL\VALSARTAN
     Dosage: 1 DF (97/103MG), BID
     Route: 048
     Dates: start: 20170529, end: 20170920
  4. ENTRESTO [Suspect]
     Active Substance: SACUBITRIL\VALSARTAN
     Dosage: 1 DF (49/51MG), BID
     Route: 048
     Dates: start: 20170920, end: 20170922
  5. METOPROLOL SUCCINATE. [Concomitant]
     Active Substance: METOPROLOL SUCCINATE
     Indication: HYPERTENSION
     Dosage: 1 DF, QD
     Route: 048
  6. IBUPROFEN. [Concomitant]
     Active Substance: IBUPROFEN
     Indication: PRODUCT USED FOR UNKNOWN INDICATION
     Dosage: UNK, PRN
     Route: 065
     Dates: start: 201709
  7. ENTRESTO [Suspect]
     Active Substance: SACUBITRIL\VALSARTAN
     Indication: CARDIAC FAILURE CHRONIC
     Dosage: 1 DF, UNK
     Route: 048
     Dates: start: 20170316, end: 20170320
  8. PANTOPRAZOLE [Concomitant]
     Active Substance: PANTOPRAZOLE
     Indication: CHRONIC GASTRITIS
     Dosage: 1 DF, QD
     Route: 048
  9. ATORVASTATIN [Concomitant]
     Active Substance: ATORVASTATIN
     Indication: CORONARY ARTERY DISEASE
     Dosage: 1 DF, QD
     Route: 048
     Dates: start: 2015
  10. ENTRESTO [Suspect]
     Active Substance: SACUBITRIL\VALSARTAN
     Indication: CARDIAC FAILURE
     Dosage: 1 DF (24/26 MG), BID
     Route: 048
     Dates: start: 20170320, end: 20170429
  11. VALSARTAN. [Concomitant]
     Active Substance: VALSARTAN
     Indication: HYPERTENSION
  12. VALSARTAN. [Concomitant]
     Active Substance: VALSARTAN
     Indication: HYPERTENSION
  13. ENTRESTO [Suspect]
     Active Substance: SACUBITRIL\VALSARTAN
     Dosage: 1 DF (49/51 MG), BID
     Route: 048
     Dates: start: 20170430, end: 20170528
  14. EPLERENONE. [Concomitant]
     Active Substance: EPLERENONE
     Indication: HYPERTENSION
     Dosage: 1 DF, QD
     Route: 048
  15. QUETIAPINE. [Concomitant]
     Active Substance: QUETIAPINE
     Indication: BIPOLAR DISORDER
     Dosage: UNK UNK (50 MG, QD AND 300 MG, QD), QD
     Route: 048
  16. ASPIRIN. [Concomitant]
     Active Substance: ASPIRIN
     Indication: CORONARY ARTERY DISEASE
     Dosage: 1 DF, QD
     Route: 048
     Dates: start: 2015
  17. VALSARTAN. [Concomitant]
     Active Substance: VALSARTAN
     Indication: CARDIAC FAILURE
     Dosage: 0.5 DF, UNK
     Route: 048
     Dates: start: 20170922

REACTIONS (8)
  - Tubulointerstitial nephritis [Recovered/Resolved]
  - Hypotension [Unknown]
  - Protein urine present [Unknown]
  - Syncope [Recovered/Resolved]
  - Concomitant disease aggravated [Not Recovered/Not Resolved]
  - Acute kidney injury [Recovered/Resolved]
  - Cardiovascular disorder [Recovered/Resolved]
  - Cardiac ventricular thrombosis [Not Recovered/Not Resolved]

NARRATIVE: CASE EVENT DATE: 20170919
